FAERS Safety Report 4366343-5 (Version None)
Quarter: 2004Q2

REPORT INFORMATION
  Report Type: 
  Country: None (occurrence: None)
  Receive Date: 20040527
  Receipt Date: 20031007
  Transmission Date: 20050107
  Serious: No
  Sender: FDA-Public Use
  Company Number: US-GLAXOSMITHKLINE-A0429273A

PATIENT
  Age: 77 Year
  Sex: Female

DRUGS (5)
  1. ALBUTEROL [Suspect]
     Dosage: 4 PER DAY
     Route: 055
     Dates: start: 20030519, end: 20030801
  2. FLOVENT [Suspect]
     Dosage: 4 PER DAY
     Route: 055
     Dates: start: 20030519, end: 20030801
  3. SEREVENT [Suspect]
     Dosage: 4 PER DAY
     Route: 055
     Dates: start: 20030519, end: 20030801
  4. EVISTA [Concomitant]
  5. MULTIVITAMIN [Concomitant]

REACTIONS (4)
  - DIZZINESS [None]
  - DYSGRAPHIA [None]
  - NAUSEA [None]
  - TREMOR [None]
